FAERS Safety Report 13414512 (Version 3)
Quarter: 2018Q1

REPORT INFORMATION
  Report Type: Report from Study
  Country: JP (occurrence: JP)
  Receive Date: 20170407
  Receipt Date: 20180104
  Transmission Date: 20180508
  Serious: Yes (Hospitalization)
  Sender: FDA-Public Use
  Company Number: JP-ACTELION-A-CH2017-151958

PATIENT
  Age: 79 Year
  Sex: Female

DRUGS (16)
  1. ADCIRCA [Concomitant]
     Active Substance: TADALAFIL
  2. CYMBALTA [Concomitant]
     Active Substance: DULOXETINE HYDROCHLORIDE
  3. CARELOAD [Concomitant]
     Active Substance: BERAPROST SODIUM
  4. OPSUMIT [Suspect]
     Active Substance: MACITENTAN
     Indication: PULMONARY ARTERIAL HYPERTENSION
     Dosage: 10 MG, OD
     Route: 048
     Dates: start: 20161115, end: 20170506
  5. ELIQUIS [Concomitant]
     Active Substance: APIXABAN
  6. CALFINA [Concomitant]
     Active Substance: ALFACALCIDOL
  7. OPSUMIT [Suspect]
     Active Substance: MACITENTAN
     Dosage: 10 MG, OD
     Route: 048
     Dates: start: 20170514
  8. TRAMCET [Concomitant]
     Active Substance: ACETAMINOPHEN\TRAMADOL
  9. OXYGEN. [Concomitant]
     Active Substance: OXYGEN
  10. SPIRONOLACTONE. [Concomitant]
     Active Substance: SPIRONOLACTONE
  11. BERAPROST [Concomitant]
     Active Substance: BERAPROST
  12. BELSOMRA [Concomitant]
     Active Substance: SUVOREXANT
  13. FEBURIC [Concomitant]
     Active Substance: FEBUXOSTAT
  14. MAGNESIUM OXIDE. [Concomitant]
     Active Substance: MAGNESIUM OXIDE
  15. FUROSEMIDE. [Concomitant]
     Active Substance: FUROSEMIDE
  16. LYRICA [Concomitant]
     Active Substance: PREGABALIN

REACTIONS (9)
  - Intestinal obstruction [Recovering/Resolving]
  - Vomiting [Recovering/Resolving]
  - Gastrointestinal tube insertion [Unknown]
  - Ileus [Recovering/Resolving]
  - Alanine aminotransferase increased [Recovering/Resolving]
  - Intestinal dilatation [Recovering/Resolving]
  - Aspartate aminotransferase increased [Recovering/Resolving]
  - Abdominal pain [Recovering/Resolving]
  - Cholangitis acute [Recovering/Resolving]

NARRATIVE: CASE EVENT DATE: 20161218
